FAERS Safety Report 5612829-2 (Version None)
Quarter: 2008Q1

REPORT INFORMATION
  Report Type: 
  Country: None (occurrence: None)
  Receive Date: 20080204
  Receipt Date: 20080124
  Transmission Date: 20080703
  Serious: Yes (Other)
  Sender: FDA-Public Use
  Company Number: US-WYE-H01535407

PATIENT
  Sex: Female
  Weight: 54.48 kg

DRUGS (3)
  1. LYBREL [Suspect]
     Indication: ORAL CONTRACEPTION
     Route: 048
     Dates: start: 20071105, end: 20071101
  2. DOCUSATE SODIUM [Concomitant]
     Dosage: 2 DAILY
     Route: 048
  3. VITAMINS, OTHER COMBINATIONS [Concomitant]
     Indication: PRENATAL CARE
     Route: 048
     Dates: start: 20071101, end: 20080101

REACTIONS (3)
  - ABORTION MISSED [None]
  - DRUG INEFFECTIVE [None]
  - UNINTENDED PREGNANCY [None]
